FAERS Safety Report 10055279 (Version 2)
Quarter: 2014Q2

REPORT INFORMATION
  Report Type: Report from Study
  Country: US (occurrence: US)
  Receive Date: 20140403
  Receipt Date: 20140609
  Transmission Date: 20141212
  Serious: Yes (Hospitalization)
  Sender: FDA-Public Use
  Company Number: US-ROCHE-1375284

PATIENT
  Age: 49 Year
  Sex: Female

DRUGS (8)
  1. XOLAIR [Suspect]
     Indication: ASTHMA
     Route: 058
     Dates: start: 2013
  2. MUCINEX [Concomitant]
  3. PREDNISONE [Concomitant]
  4. ALBUTEROL [Concomitant]
  5. ADVAIR [Concomitant]
  6. SINGULAIR [Concomitant]
  7. ZYRTEC [Concomitant]
  8. QNASL [Concomitant]

REACTIONS (9)
  - Asthma [Recovered/Resolved]
  - Agitation [Recovered/Resolved]
  - Middle insomnia [Recovered/Resolved]
  - Sinusitis [Recovered/Resolved]
  - Dizziness [Recovered/Resolved]
  - Headache [Recovered/Resolved]
  - Cyanosis [Recovered/Resolved]
  - Nail discolouration [Recovered/Resolved]
  - Mood swings [Recovered/Resolved]
